FAERS Safety Report 6756869-9 (Version None)
Quarter: 2010Q2

REPORT INFORMATION
  Report Type: 
  Country: None (occurrence: None)
  Receive Date: 20100604
  Receipt Date: 20100601
  Transmission Date: 20101027
  Serious: No
  Sender: FDA-Public Use
  Company Number: US-ROXANE LABORATORIES, INC.-2010-RO-00659RO

PATIENT
  Sex: Male

DRUGS (2)
  1. FUROSEMIDE [Suspect]
     Dosage: 1 ML
  2. FUROSEMIDE [Suspect]
     Dosage: 2 MG

REACTIONS (2)
  - DRUG INEFFECTIVE [None]
  - PRODUCT CONTAINER SEAL ISSUE [None]
